FAERS Safety Report 8403456-2 (Version None)
Quarter: 2012Q2

REPORT INFORMATION
  Report Type: 
  Country: None (occurrence: None)
  Receive Date: 20120601
  Receipt Date: 20100427
  Transmission Date: 20120825
  Serious: Yes (Other)
  Sender: FDA-Public Use
  Company Number: JP-BRISTOL-MYERS SQUIBB COMPANY-16526436

PATIENT
  Sex: Female

DRUGS (2)
  1. ABILIFY [Suspect]
     Dosage: 6MG THEN 24MG REDUCED TO 18MG;OVER 1 YEAR
     Route: 065
  2. HALOPERIDOL [Concomitant]

REACTIONS (2)
  - PERSECUTORY DELUSION [None]
  - NERVOUSNESS [None]
